FAERS Safety Report 4930646-3 (Version None)
Quarter: 2006Q1

REPORT INFORMATION
  Report Type: 
  Country: None (occurrence: None)
  Receive Date: 20060106
  Receipt Date: 20050824
  Transmission Date: 20060701
  Serious: No
  Sender: FDA-Public Use
  Company Number: 200511764BWH

PATIENT
  Age: 55 Year
  Sex: Male

DRUGS (1)
  1. LEVITRA [Suspect]
     Dosage: SEE IMAGE
     Route: 048

REACTIONS (3)
  - ERECTILE DYSFUNCTION [None]
  - NASAL DISCOMFORT [None]
  - RHINORRHOEA [None]
